FAERS Safety Report 11312517 (Version 1)
Quarter: 2015Q3

REPORT INFORMATION
  Report Type: Spontaneous
  Country: US (occurrence: None)
  Receive Date: 20150724
  Receipt Date: 20150724
  Transmission Date: 20151125
  Serious: Yes (Other)
  Sender: FDA-Public Use
  Company Number: None

PATIENT
  Age: 44 Year
  Sex: Male
  Weight: 71.22 kg

DRUGS (2)
  1. DR TEAL ULTRA BODY WASH LAVANDER [Suspect]
     Active Substance: ALOE VERA LEAF
     Indication: THERAPEUTIC SKIN CARE TOPICAL
     Dosage: SOAP, APPLIED TO A SURFACE, USUALLY THE SKIN
  2. SILVER CREAM BURN [Concomitant]

REACTIONS (1)
  - Application site burn [None]

NARRATIVE: CASE EVENT DATE: 20150722
